FAERS Safety Report 4395402-6 (Version None)
Quarter: 2004Q3

REPORT INFORMATION
  Report Type: 
  Country: None (occurrence: None)
  Receive Date: 20040712
  Receipt Date: 20040712
  Transmission Date: 20050211
  Serious: Yes (Other)
  Sender: FDA-Public Use
  Company Number: None

PATIENT
  Sex: Male
  Weight: 44.4525 kg

DRUGS (7)
  1. PULMICORT [Suspect]
     Indication: BRONCHOSPASM
     Dosage: 1 PUFF 1 OR 2 X ORAL
     Route: 048
     Dates: start: 20020720, end: 20040726
  2. LANSOPRAZOLE [Concomitant]
  3. CETIRIZINE/PSEUDOPHEDRINE [Concomitant]
  4. AZELASTIN NSL SPRAY [Concomitant]
  5. PREDNISONE [Concomitant]
  6. ALBUTEROL NEB [Concomitant]
  7. AZITHROMYCIN [Concomitant]

REACTIONS (2)
  - MEDICAL DEVICE COMPLICATION [None]
  - PHARMACEUTICAL PRODUCT COMPLAINT [None]
